FAERS Safety Report 5699205-1 (Version None)
Quarter: 2008Q2

REPORT INFORMATION
  Report Type: 
  Country: None (occurrence: None)
  Receive Date: 20080407
  Receipt Date: 20080407
  Transmission Date: 20081010
  Serious: No
  Sender: FDA-Public Use
  Company Number: None

PATIENT
  Age: 41 Year
  Sex: Male

DRUGS (2)
  1. GROWTH HORMONE [Suspect]
     Dates: start: 20070201, end: 20070401
  2. HYDROXYCUT [Suspect]
     Dates: start: 20070430, end: 20070502

REACTIONS (5)
  - CONDITION AGGRAVATED [None]
  - FATIGUE [None]
  - HEPATITIS C [None]
  - HEPATITIS CHOLESTATIC [None]
  - MENTAL STATUS CHANGES [None]
